FAERS Safety Report 10492971 (Version 1)
Quarter: 2014Q4

REPORT INFORMATION
  Report Type: Spontaneous
  Country: US (occurrence: US)
  Receive Date: 20141002
  Receipt Date: 20141002
  Transmission Date: 20150528
  Serious: No
  Sender: FDA-Public Use
  Company Number: US-GLAXOSMITHKLINE-A1077666A

PATIENT
  Age: 66 Year
  Sex: Female

DRUGS (3)
  1. MULTIPLE MEDICATIONS [Concomitant]
     Active Substance: UNSPECIFIED INGREDIENT
  2. ALBUTEROL. [Concomitant]
     Active Substance: ALBUTEROL
     Route: 055
  3. ADVAIR HFA [Suspect]
     Active Substance: FLUTICASONE PROPIONATE\SALMETEROL XINAFOATE
     Indication: CHRONIC OBSTRUCTIVE PULMONARY DISEASE
     Dosage: 2PUFF TWICE PER DAY
     Route: 055
     Dates: start: 2009

REACTIONS (4)
  - Prescribed overdose [Unknown]
  - Dyspnoea [Unknown]
  - Off label use [Unknown]
  - Product quality issue [Unknown]
